FAERS Safety Report 9521681 (Version 3)
Quarter: 2013Q4

REPORT INFORMATION
  Report Type: Spontaneous
  Country: AU (occurrence: None)
  Receive Date: 20130911
  Receipt Date: 20131009
  Transmission Date: 20140711
  Serious: Yes (Hospitalization)
  Sender: FDA-Public Use
  Company Number: 2013AU002346

PATIENT
  Age: 65 Year
  Sex: Male
  Weight: 75.5 kg

DRUGS (12)
  1. PONATINIB [Suspect]
     Indication: CHRONIC MYELOID LEUKAEMIA
     Route: 048
     Dates: start: 20110504
  2. ZOCOR (SIMVASTATIN) [Concomitant]
  3. NEXIUM (ESOMEPRAZOLE MAGNESIUM) [Concomitant]
  4. CHLORSIG (CHLORAMPHENICOL) [Concomitant]
  5. COLOXYL WITH SENNA (DOCUSATE SODIUM, SENNOSIDE A+B) [Concomitant]
  6. ANGININE (GLYCERYL TRINITRATE) [Concomitant]
  7. LYCINATE (GLYCERYL TRINITRATE) [Concomitant]
  8. PERINDOPRIL ARGININE (PERINDOPRIL ARGININE) [Concomitant]
  9. LIPITOR (ATORVASTATIN CALCIUM) [Concomitant]
  10. ASPIRIN (ASPIRIN) [Concomitant]
  11. ATORVASTATIN (ATORVASTATIN) [Concomitant]
  12. DIPYRIDAMOLE (DIPYRIDAMOLE) [Concomitant]

REACTIONS (1)
  - Carotid artery stenosis [None]
